FAERS Safety Report 5195721-X (Version None)
Quarter: 2007Q1

REPORT INFORMATION
  Report Type: 
  Country: None (occurrence: None)
  Receive Date: 20070102
  Receipt Date: 20061220
  Transmission Date: 20070707
  Serious: Yes (Hospitalization)
  Sender: FDA-Public Use
  Company Number: JP-ROCHE-461433

PATIENT
  Age: 59 Year
  Sex: Female
  Weight: 55 kg

DRUGS (8)
  1. PEGASYS [Suspect]
     Route: 058
     Dates: start: 20060511, end: 20060810
  2. PEG-INTRON [Suspect]
     Route: 058
     Dates: start: 20050901, end: 20060504
  3. BANAN [Concomitant]
     Route: 048
     Dates: start: 20060508, end: 20060518
  4. CEFZON [Concomitant]
     Route: 048
     Dates: start: 20060508, end: 20060518
  5. REBETOL [Concomitant]
     Route: 048
     Dates: start: 20050901
  6. BLOPRESS [Concomitant]
     Route: 048
     Dates: start: 20010615
  7. AMARYL [Concomitant]
     Route: 048
     Dates: start: 20020615
  8. NORVASC [Concomitant]
     Route: 048
     Dates: start: 20010615

REACTIONS (1)
  - ABSCESS [None]
